FAERS Safety Report 24300997 (Version 2)
Quarter: 2025Q1

REPORT INFORMATION
  Report Type: Spontaneous
  Country: US (occurrence: US)
  Receive Date: 20240910
  Receipt Date: 20250222
  Transmission Date: 20250409
  Serious: No
  Sender: SANOFI AVENTIS
  Company Number: US-SA-2024SA259966

PATIENT
  Age: 8 Year
  Sex: Male

DRUGS (1)
  1. DUPIXENT [Suspect]
     Active Substance: DUPILUMAB
     Indication: Eosinophilic oesophagitis
     Dosage: 200 MG, QOW
     Route: 058

REACTIONS (6)
  - Dysphagia [Unknown]
  - Decreased appetite [Unknown]
  - Weight increased [Unknown]
  - Eye irritation [Unknown]
  - Eosinophilic oesophagitis [Unknown]
  - Product dose omission in error [Unknown]
